FAERS Safety Report 24977162 (Version 1)
Quarter: 2025Q1

REPORT INFORMATION
  Report Type: Spontaneous
  Country: JP (occurrence: JP)
  Receive Date: 20250217
  Receipt Date: 20250217
  Transmission Date: 20250408
  Serious: Yes (Hospitalization, Other)
  Sender: ELI LILLY AND COMPANY
  Company Number: JP-Merck Healthcare KGaA-2025006272

PATIENT
  Sex: Male

DRUGS (3)
  1. ERBITUX [Suspect]
     Active Substance: CETUXIMAB
     Indication: Lip and/or oral cavity cancer
     Dosage: 400 MG, WEEKLY (1/W)
     Route: 041
     Dates: start: 20250120, end: 20250120
  2. ERBITUX [Suspect]
     Active Substance: CETUXIMAB
     Dosage: 250 MG, WEEKLY (1/W)
     Route: 041
     Dates: start: 20250127, end: 20250127
  3. PACLITAXEL [Suspect]
     Active Substance: PACLITAXEL
     Indication: Lip and/or oral cavity cancer
     Dosage: 80 MG, WEEKLY (1/W)
     Route: 041
     Dates: start: 20250120, end: 20250127

REACTIONS (3)
  - Intestinal obstruction [Unknown]
  - Flatulence [Unknown]
  - Vomiting [Unknown]

NARRATIVE: CASE EVENT DATE: 20250203
